FAERS Safety Report 10173798 (Version 2)
Quarter: 2014Q4

REPORT INFORMATION
  Report Type: Spontaneous
  Country: FR (occurrence: FR)
  Receive Date: 20140515
  Receipt Date: 20141022
  Transmission Date: 20150528
  Serious: Yes (Hospitalization)
  Sender: FDA-Public Use
  Company Number: FR-PFIZER INC-2014131430

PATIENT
  Age: 86 Year
  Sex: Female

DRUGS (8)
  1. FOSAMAX [Concomitant]
     Active Substance: ALENDRONATE SODIUM
  2. CORTANCYL [Concomitant]
     Active Substance: PREDNISONE
  3. CALCIPARINE [Concomitant]
     Active Substance: HEPARIN CALCIUM
  4. FUROSEMIDE. [Concomitant]
     Active Substance: FUROSEMIDE
  5. CALCIDOSE [Concomitant]
     Active Substance: CALCIUM CARBONATE
  6. TEMESTA [Concomitant]
     Active Substance: LORAZEPAM
  7. LYRICA [Suspect]
     Active Substance: PREGABALIN
     Indication: NEURALGIA
     Dosage: 50 MG, 1X/DAY
     Route: 048
     Dates: start: 20140210, end: 20140217
  8. OXYNORM [Concomitant]
     Active Substance: OXYCODONE HYDROCHLORIDE

REACTIONS (2)
  - Agranulocytosis [Recovered/Resolved]
  - Sepsis [Recovered/Resolved]

NARRATIVE: CASE EVENT DATE: 20140215
